FAERS Safety Report 7306516-2 (Version None)
Quarter: 2011Q1

REPORT INFORMATION
  Report Type: 
  Country: None (occurrence: None)
  Receive Date: 20110222
  Receipt Date: 20110210
  Transmission Date: 20110831
  Serious: Yes (Hospitalization)
  Sender: FDA-Public Use
  Company Number: US-ASTRAZENECA-2010SE46851

PATIENT
  Age: 52 Year
  Sex: Female
  Weight: 86.2 kg

DRUGS (7)
  1. TOPROL-XL [Suspect]
     Indication: HYPERTENSION
     Route: 048
  2. KLONOPIN [Concomitant]
     Indication: ANXIETY
  3. OXYCODONE [Concomitant]
  4. LISINOPRIL [Suspect]
     Route: 048
  5. SEROQUEL XR [Suspect]
     Indication: SLEEP DISORDER
     Route: 048
     Dates: start: 20090101
  6. LASIX [Concomitant]
  7. SEROQUEL XR [Suspect]
     Indication: NERVOUSNESS
     Route: 048
     Dates: start: 20090101

REACTIONS (9)
  - CHEST PAIN [None]
  - INSOMNIA [None]
  - WEIGHT DECREASED [None]
  - DIARRHOEA [None]
  - DRUG INEFFECTIVE [None]
  - DRUG DOSE OMISSION [None]
  - HYPERTENSION [None]
  - NAUSEA [None]
  - HEADACHE [None]
